FAERS Safety Report 10401986 (Version 2)
Quarter: 2014Q3

REPORT INFORMATION
  Report Type: Report from Study
  Country: None (occurrence: TH)
  Receive Date: 20140822
  Receipt Date: 20140822
  Transmission Date: 20150326
  Serious: Yes (Hospitalization, Other)
  Sender: FDA-Public Use
  Company Number: TH-EISAI INC-E7389-01127-CLI-TH

PATIENT
  Age: 72 Year
  Sex: Female
  Weight: 40 kg

DRUGS (3)
  1. ERIBULIN [Suspect]
     Active Substance: ERIBULIN
     Indication: NON-SMALL CELL LUNG CANCER
     Route: 041
     Dates: start: 20101130, end: 20130326
  2. ERIBULIN [Suspect]
     Active Substance: ERIBULIN
     Route: 041
     Dates: start: 20130327, end: 20140722
  3. ERLOTINIB [Concomitant]
     Active Substance: ERLOTINIB
     Indication: NON-SMALL CELL LUNG CANCER
     Route: 048
     Dates: start: 20101214

REACTIONS (5)
  - Cataract [Recovered/Resolved]
  - Gastroenteritis [Recovered/Resolved]
  - Altered state of consciousness [Recovered/Resolved]
  - Fatigue [Recovered/Resolved]
  - Neutrophil count decreased [Recovered/Resolved]

NARRATIVE: CASE EVENT DATE: 20110111
